FAERS Safety Report 14686496 (Version 3)
Quarter: 2018Q2

REPORT INFORMATION
  Report Type: Spontaneous
  Country: US (occurrence: US)
  Receive Date: 20180327
  Receipt Date: 20180413
  Transmission Date: 20180711
  Serious: No
  Sender: FDA-Public Use
  Company Number: US-TEVA-2018-US-873975

PATIENT
  Sex: Female

DRUGS (1)
  1. PRAVASTATIN SODIUM. [Suspect]
     Active Substance: PRAVASTATIN SODIUM
     Route: 065

REACTIONS (3)
  - Product physical issue [Unknown]
  - Product odour abnormal [Unknown]
  - Product taste abnormal [Unknown]
